FAERS Safety Report 25584469 (Version 1)
Quarter: 2025Q3

REPORT INFORMATION
  Report Type: Spontaneous
  Country: US (occurrence: US)
  Receive Date: 20250721
  Receipt Date: 20250721
  Transmission Date: 20251020
  Serious: Yes (Other)
  Sender: PROCTER AND GAMBLE
  Company Number: US-PROCTER+GAMBLE-PH25009793

PATIENT

DRUGS (2)
  1. VICKS PAINQUIL PAIN RELIEVER [Suspect]
     Active Substance: ACETAMINOPHEN
     Route: 048
  2. VICKS PAINQUIL AND VICKS PAINQUIL PM PAIN RELIEVER [Suspect]
     Active Substance: ACETAMINOPHEN\DIPHENHYDRAMINE HYDROCHLORIDE
     Route: 048

REACTIONS (1)
  - Seizure [Unknown]
